FAERS Safety Report 25543417 (Version 1)
Quarter: 2025Q3

REPORT INFORMATION
  Report Type: Spontaneous
  Country: US (occurrence: US)
  Receive Date: 20250711
  Receipt Date: 20250711
  Transmission Date: 20251020
  Serious: No
  Sender: INCYTE
  Company Number: US-INCYTE CORPORATION-2025IN007304

PATIENT
  Age: 67 Year
  Weight: 88.6 kg

DRUGS (1)
  1. JAKAFI [Suspect]
     Active Substance: RUXOLITINIB
     Indication: Myelofibrosis

REACTIONS (3)
  - Haemoglobin decreased [Unknown]
  - Stool DNA test abnormal [Unknown]
  - Blood cholesterol increased [Unknown]
